FAERS Safety Report 5692948-5 (Version None)
Quarter: 2008Q2

REPORT INFORMATION
  Report Type: 
  Country: None (occurrence: None)
  Receive Date: 20080403
  Receipt Date: 20080331
  Transmission Date: 20081010
  Serious: Yes (Hospitalization)
  Sender: FDA-Public Use
  Company Number: US-RB-009387-08

PATIENT
  Sex: Male

DRUGS (8)
  1. SUBOXONE [Suspect]
     Route: 060
     Dates: start: 20080201, end: 20080301
  2. SUBOXONE [Suspect]
     Dosage: DOSE UNKNOWN
     Route: 060
     Dates: end: 20080201
  3. LISINOPRIL [Concomitant]
     Indication: HYPERTENSION
     Route: 048
     Dates: start: 20080201
  4. LISINOPRIL [Concomitant]
     Dosage: DOSE UNKNOWN
     Route: 048
     Dates: end: 20080201
  5. LIBRIUM [Concomitant]
     Indication: ALCOHOL WITHDRAWAL SYNDROME
     Route: 048
     Dates: start: 20080214
  6. LIBRIUM [Concomitant]
     Dosage: DOSE UNKNOWN
     Route: 048
     Dates: end: 20080213
  7. DYAZIDE [Concomitant]
     Indication: HYPERTENSION
     Dosage: DOSE UNKNOWN
     Route: 048
     Dates: start: 20080201
  8. DYAZIDE [Concomitant]
     Dosage: DOSE UNKNOWN
     Route: 048
     Dates: end: 20080201

REACTIONS (4)
  - CARDIAC DISORDER [None]
  - HYPERTENSION [None]
  - OEDEMA PERIPHERAL [None]
  - PAIN IN EXTREMITY [None]
